FAERS Safety Report 8959781 (Version 3)
Quarter: 2013Q1

REPORT INFORMATION
  Report Type: Report from Study
  Country: SE (occurrence: SE)
  Receive Date: 20121212
  Receipt Date: 20130116
  Transmission Date: 20140127
  Serious: Yes (Life-Threatening, Hospitalization)
  Sender: FDA-Public Use
  Company Number: SE-AMGEN-SWESP2012079651

PATIENT
  Age: 63 Year
  Sex: Male

DRUGS (10)
  1. ETANERCEPT [Suspect]
     Indication: PSORIATIC ARTHROPATHY
     Dosage: 50 MG, QWK
     Route: 058
     Dates: start: 20120921, end: 20121006
  2. PREDNISOLONE [Concomitant]
     Dosage: UNK
     Dates: start: 201208, end: 201208
  3. HUMIRA [Concomitant]
     Dosage: UNK
     Dates: start: 201008, end: 20120808
  4. HUMIRA [Concomitant]
     Dosage: UNK
     Dates: start: 20100309, end: 20120621
  5. CALCICHEW-D3 SPEARMINT [Concomitant]
     Dosage: UNK
  6. BEHEPAN [Concomitant]
     Dosage: 1 MG, UNKNOWN FREQUENCY
  7. DUROFERON [Concomitant]
     Dosage: 100 MG, UNKNOWN FREQUENCY
  8. LASIX                              /00032601/ [Concomitant]
     Dosage: 30 MG, UNKNOWN FREQUENCY
  9. ALVEDON [Concomitant]
     Dosage: 1 G, UNKNOWN FREQUENCY
  10. TROMBYL [Concomitant]
     Dosage: 75 MG, UNKNOWN FREQUENCY

REACTIONS (8)
  - Throat tightness [Not Recovered/Not Resolved]
  - Dyspnoea [Unknown]
  - Pulmonary oedema [Unknown]
  - Chest pain [Not Recovered/Not Resolved]
  - Cutaneous vasculitis [Not Recovered/Not Resolved]
  - Cardiac failure [Unknown]
  - Anxiety [Not Recovered/Not Resolved]
  - Epistaxis [Not Recovered/Not Resolved]
